FAERS Safety Report 11176670 (Version 2)
Quarter: 2016Q3

REPORT INFORMATION
  Report Type: Report from Study
  Country: GB (occurrence: GB)
  Receive Date: 20150610
  Receipt Date: 20160916
  Transmission Date: 20161109
  Serious: Yes (Other)
  Sender: FDA-Public Use
  Company Number: GB-ROCHE-1590612

PATIENT
  Sex: Female

DRUGS (1)
  1. HERCEPTIN [Suspect]
     Active Substance: TRASTUZUMAB
     Indication: PRODUCT USED FOR UNKNOWN INDICATION
     Dosage: THE LAST DOSE WAS ON 03/JUN/2015, AS CYCLE 3
     Route: 065

REACTIONS (3)
  - Burning sensation [Unknown]
  - Lymphoedema [Unknown]
  - Rash [Unknown]
